FAERS Safety Report 4631300-8 (Version None)
Quarter: 2005Q2

REPORT INFORMATION
  Report Type: 
  Country: None (occurrence: None)
  Receive Date: 20050406
  Receipt Date: 20050318
  Transmission Date: 20051028
  Serious: Yes (Hospitalization, Other)
  Sender: FDA-Public Use
  Company Number: US_0503114559

PATIENT
  Age: 68 Year
  Sex: Female
  Weight: 91 kg

DRUGS (9)
  1. HUMALOG [Suspect]
     Indication: DIABETES MELLITUS NON-INSULIN-DEPENDENT
     Dates: start: 19920101
  2. HUMULIN N [Suspect]
     Indication: DIABETES MELLITUS NON-INSULIN-DEPENDENT
     Dates: start: 19920101
  3. METFORMIN HCL [Concomitant]
  4. FUROSEMIDE [Concomitant]
  5. SIMVASTATIN (SIMVASTATIN RATIOPHARM) [Concomitant]
  6. LOSARTAN POTASSIUM [Concomitant]
  7. PREDNISONE [Concomitant]
  8. DILTIAZEM HYDROCHLORIDE [Concomitant]
  9. GABAPENTIN [Concomitant]

REACTIONS (5)
  - BURNING SENSATION [None]
  - DIFFICULTY IN WALKING [None]
  - PAIN [None]
  - PARAESTHESIA [None]
  - VISUAL DISTURBANCE [None]
